FAERS Safety Report 5820839-5 (Version None)
Quarter: 2008Q3

REPORT INFORMATION
  Report Type: 
  Country: None (occurrence: None)
  Receive Date: 20080724
  Receipt Date: 20080710
  Transmission Date: 20090109
  Serious: Yes (Disabling)
  Sender: FDA-Public Use
  Company Number: NL-ASTRAZENECA-2008AC01669

PATIENT
  Age: 17617 Day
  Sex: Female
  Weight: 77 kg

DRUGS (1)
  1. ARIMIDEX [Suspect]
     Indication: BREAST CANCER
     Route: 048
     Dates: start: 20071217, end: 20080610

REACTIONS (3)
  - EMOTIONAL DISORDER [None]
  - FATIGUE [None]
  - RESTLESSNESS [None]
